FAERS Safety Report 8328800-6 (Version None)
Quarter: 2012Q2

REPORT INFORMATION
  Report Type: 
  Country: None (occurrence: None)
  Receive Date: 20120502
  Receipt Date: 20120424
  Transmission Date: 20120825
  Serious: Yes (Other)
  Sender: FDA-Public Use
  Company Number: US-ELI_LILLY_AND_COMPANY-US201204003917

PATIENT
  Sex: Female

DRUGS (8)
  1. LORAZEPAM [Concomitant]
  2. LISINOPRIL [Concomitant]
  3. WARFARIN SODIUM [Concomitant]
  4. ADCIRCA [Suspect]
     Dosage: 20 MG, QD
     Dates: start: 20120424
  5. ADCIRCA [Suspect]
     Indication: PULMONARY HYPERTENSION
     Dosage: 40 MG, QD
     Dates: start: 20120101, end: 20120420
  6. MAGNESIUM [Concomitant]
  7. GLUCOTROL [Concomitant]
  8. LANTUS [Concomitant]

REACTIONS (13)
  - ARTHRITIS [None]
  - COLD SWEAT [None]
  - TREMOR [None]
  - LOSS OF CONSCIOUSNESS [None]
  - HEADACHE [None]
  - LACERATION [None]
  - FIBROMYALGIA [None]
  - RASH [None]
  - HYPERHIDROSIS [None]
  - HEART RATE INCREASED [None]
  - NASAL CONGESTION [None]
  - FLUSHING [None]
  - MYALGIA [None]
